FAERS Safety Report 9446186 (Version 1)
Quarter: 2013Q3

REPORT INFORMATION
  Report Type: Spontaneous
  Country: US (occurrence: US)
  Receive Date: 20130807
  Receipt Date: 20130807
  Transmission Date: 20140515
  Serious: No
  Sender: FDA-Public Use
  Company Number: US-AMGEN-USASP2013047199

PATIENT
  Age: 55 Year
  Sex: Female
  Weight: 90.7 kg

DRUGS (10)
  1. ENBREL [Suspect]
     Indication: RHEUMATOID ARTHRITIS
     Dosage: 50 MG, QWK
     Route: 058
     Dates: start: 20130618
  2. PREDNISONE [Concomitant]
     Dosage: 10 MG, UNK
  3. LEFLUNOMIDE [Concomitant]
     Dosage: 10 MG, UNK
  4. CITALOPRAM [Concomitant]
     Dosage: 40 MG, UNK
  5. OMEPRAZOLE [Concomitant]
     Dosage: 20 MG, UNK
  6. IMITREX                            /01044801/ [Concomitant]
     Dosage: 50 MG, UNK
  7. LEVOTHYROXIN [Concomitant]
     Dosage: 112 MUG, UNK
  8. CLARITIN-D [Concomitant]
     Dosage: 5-120 MG
  9. ATORVASTATIN [Concomitant]
     Dosage: 80 MG, UNK
  10. CALCIUM +D                         /00944201/ [Concomitant]
     Dosage: UNK

REACTIONS (5)
  - Injection site bruising [Not Recovered/Not Resolved]
  - Injection site erythema [Not Recovered/Not Resolved]
  - Injection site pain [Not Recovered/Not Resolved]
  - Injection site swelling [Not Recovered/Not Resolved]
  - Injection site haemorrhage [Recovered/Resolved]
